FAERS Safety Report 19643952 (Version 6)
Quarter: 2022Q1

REPORT INFORMATION
  Report Type: Report from Study
  Country: US (occurrence: US)
  Receive Date: 20210731
  Receipt Date: 20220202
  Transmission Date: 20220423
  Serious: No
  Sender: FDA-Public Use
  Company Number: NVSC2021US173452

PATIENT
  Sex: Male

DRUGS (4)
  1. ENTRESTO [Suspect]
     Active Substance: SACUBITRIL\VALSARTAN
     Indication: Product used for unknown indication
     Dosage: UNK, BID, 24/26 MG
     Route: 048
     Dates: start: 20210712
  2. ENTRESTO [Suspect]
     Active Substance: SACUBITRIL\VALSARTAN
     Dosage: UNK, BID, 24/26 MG
     Route: 048
     Dates: start: 20210712
  3. ENTRESTO [Suspect]
     Active Substance: SACUBITRIL\VALSARTAN
     Dosage: UNK
     Route: 065
  4. ELIQUIS [Concomitant]
     Active Substance: APIXABAN
     Indication: Product used for unknown indication
     Dosage: UNK
     Route: 065

REACTIONS (12)
  - Weight fluctuation [Unknown]
  - Abdominal discomfort [Unknown]
  - Visual impairment [Unknown]
  - Abdominal pain [Unknown]
  - Flatulence [Unknown]
  - Occult blood positive [Unknown]
  - Ejection fraction decreased [Unknown]
  - Hypotension [Unknown]
  - Weight decreased [Unknown]
  - Cardiac murmur [Unknown]
  - Palpitations [Unknown]
  - Dizziness [Unknown]
